FAERS Safety Report 9248559 (Version 1)
Quarter: 2013Q1

REPORT INFORMATION
  Report Type: Spontaneous
  Country: US (occurrence: None)
  Receive Date: 20130305
  Receipt Date: 20130305
  Transmission Date: 20140127
  Serious: Yes (Other)
  Sender: FDA-Public Use
  Company Number: 163-21880-12092756

PATIENT
  Age: 82 Year
  Sex: Male
  Weight: 108.86 kg

DRUGS (10)
  1. REVLIMID [Suspect]
     Indication: PLASMA CELL MYELOMA
     Route: 048
     Dates: start: 20120709
  2. DYAZIDE (DYAZIDE) [Concomitant]
  3. SIMVASTATIN (SIMVASTATIN) [Concomitant]
  4. LEVOTHYROXINE (LEVOTHYROXINE) [Concomitant]
  5. WARFARIN (WARFARIN) [Concomitant]
  6. SYMBICORT (SYMBICORT TURBUHALER ^DRACO^) [Concomitant]
  7. ALBUTEROL (SALBUTAMOL) [Concomitant]
  8. ASPIRIN (ACETYLSALICYLIC ACID) [Concomitant]
  9. VITAMIN D (ERGOCALCIFEROL) [Concomitant]
  10. CALCIUM CARBONATE (CALCIUM CARBONATE) [Concomitant]

REACTIONS (1)
  - Rectal haemorrhage [None]
